FAERS Safety Report 5720086-1 (Version None)
Quarter: 2008Q2

REPORT INFORMATION
  Report Type: 
  Country: None (occurrence: None)
  Receive Date: 20080428
  Receipt Date: 20080421
  Transmission Date: 20081010
  Serious: Yes (Hospitalization)
  Sender: FDA-Public Use
  Company Number: SE-PURDUE-GBR_2008_0003932

PATIENT
  Age: 89 Year
  Sex: Male

DRUGS (8)
  1. OXYCONTIN [Suspect]
     Indication: DRUG USE FOR UNKNOWN INDICATION
     Route: 048
  2. EPREX [Concomitant]
     Route: 065
  3. ZOPICLONE [Concomitant]
     Route: 065
  4. FOLACIN [Concomitant]
     Dosage: 5 MG, UNK
     Route: 065
  5. ACETAMINOPHEN [Concomitant]
     Dosage: 500 MG, UNK
     Route: 065
  6. ERCO-FER VITAMIN [Concomitant]
     Dosage: 60 MG, UNK
     Route: 065
  7. BEHEPAN [Concomitant]
     Dosage: 1 MG, UNK
     Route: 065
  8. PREDNISOLONE [Concomitant]
     Dosage: UNK, UNK
     Route: 065

REACTIONS (6)
  - ANOREXIA [None]
  - DIZZINESS [None]
  - FATIGUE [None]
  - MALAISE [None]
  - RENAL IMPAIRMENT [None]
  - VOMITING [None]
